FAERS Safety Report 5710137-2 (Version None)
Quarter: 2008Q2

REPORT INFORMATION
  Report Type: 
  Country: None (occurrence: None)
  Receive Date: 20080418
  Receipt Date: 20071112
  Transmission Date: 20081010
  Serious: No
  Sender: FDA-Public Use
  Company Number: US-ASTRAZENECA-2007UW26209

PATIENT
  Age: 79 Year
  Sex: Female
  Weight: 50.8 kg

DRUGS (5)
  1. METOPROLOL TARTRATE [Suspect]
     Indication: HYPERTENSION
     Route: 048
     Dates: start: 20071028
  2. METOPROLOL TARTRATE [Suspect]
     Route: 048
  3. VITAMINS [Concomitant]
  4. ASPIRIN [Concomitant]
  5. CALCIUM W/ VITAMIN D [Concomitant]
     Dosage: SOFTGEL

REACTIONS (2)
  - ABDOMINAL DISTENSION [None]
  - FLATULENCE [None]
